FAERS Safety Report 22173204 (Version 1)
Quarter: 2023Q2

REPORT INFORMATION
  Report Type: Spontaneous
  Country: DE (occurrence: DE)
  Receive Date: 20230404
  Receipt Date: 20230404
  Transmission Date: 20230722
  Serious: Yes (Other)
  Sender: FDA-Public Use
  Company Number: DE-BAXTER-2023BAX016840

PATIENT
  Sex: Female

DRUGS (7)
  1. OLIMEL E [Suspect]
     Active Substance: AMINO ACIDS\DEXTROSE\ELECTROLYTES NOS\SOYBEAN OIL
     Indication: Parenteral nutrition
     Dosage: AT AN UNSPECIFIED DOSE AND FREQUENCY, ADMINISTRATED VIA PICC LINE CATHETER (CENTRAL LINE)
     Route: 042
  2. CERNEVIT [Suspect]
     Active Substance: VITAMINS
     Indication: Parenteral nutrition
     Dosage: AT AN UNSPECIFIED DOSE AND FREQUENCY, ADMINISTRATED VIA PICC LINE CATHETER (CENTRAL LINE)
     Route: 042
  3. FOLIC ACID [Suspect]
     Active Substance: FOLIC ACID
     Dosage: UNK
     Route: 042
  4. THIAMINE HYDROCHLORIDE [Suspect]
     Active Substance: THIAMINE HYDROCHLORIDE
     Dosage: 200 MILLIGRAM AT AN UNSPECIFIED FREQUENCY
     Route: 065
  5. VITAMIN B6 [Suspect]
     Active Substance: PYRIDOXINE HYDROCHLORIDE
     Dosage: 200 MILLIGRAM AT AN UNSPECIFIED FREQUENCY
     Route: 065
  6. VITAMIN B12 [Suspect]
     Active Substance: CYANOCOBALAMIN
     Dosage: 200 MICROGRAM AT AN UNSPECIFIED FREQUENCY
     Route: 065
  7. VITAMIN C [Suspect]
     Active Substance: ASCORBIC ACID
     Dosage: 200 MILLIGRAM AT AN UNSPECIFIED FREQUENCY
     Route: 065

REACTIONS (4)
  - Starvation [Unknown]
  - Coronavirus infection [Unknown]
  - Urine ketone body [Unknown]
  - Exposure during pregnancy [Unknown]
